FAERS Safety Report 7327229 (Version 4)
Quarter: 2014Q2

REPORT INFORMATION
  Report Type: Spontaneous
  Country: CA (occurrence: CA)
  Receive Date: 20100322
  Receipt Date: 20140623
  Transmission Date: 20141212
  Serious: Yes (Hospitalization, Other)
  Sender: FDA-Public Use
  Company Number: CA-PFIZER INC-2010029592

PATIENT
  Sex: Male

DRUGS (6)
  1. CORTEF [Suspect]
     Indication: ADDISON^S DISEASE
     Dosage: 15 MG IN THE MORNING, 5 MG IN THE AFTERNOON AND 2.5 MG IN THE EVENING
     Route: 048
  2. SOLU-CORTEF [Suspect]
     Dosage: 100 MG, 4X/DAY (EVERY 6 HOURS)
     Route: 042
     Dates: start: 20100310, end: 20100313
  3. MELATONIN [Concomitant]
     Dosage: UNK
  4. VITAMIN C [Concomitant]
     Dosage: UNK
  5. DHEA [Concomitant]
     Dosage: UNK
  6. SEROTONIN [Concomitant]
     Dosage: UNK

REACTIONS (4)
  - Adrenocortical insufficiency acute [Recovering/Resolving]
  - Fluid retention [Recovered/Resolved]
  - Weight increased [Recovered/Resolved]
  - Heart rate increased [Not Recovered/Not Resolved]
